FAERS Safety Report 22093504 (Version 7)
Quarter: 2024Q3

REPORT INFORMATION
  Report Type: Report from Study
  Country: BR (occurrence: BR)
  Receive Date: 20230314
  Receipt Date: 20240711
  Transmission Date: 20241016
  Serious: Yes (Death, Hospitalization, Other)
  Sender: TAKEDA
  Company Number: BR-TAKEDA-2021TUS062278

PATIENT
  Age: 63 Year
  Sex: Male
  Weight: 71 kg

DRUGS (11)
  1. AGALSIDASE ALFA [Suspect]
     Active Substance: AGALSIDASE ALFA
     Indication: Fabry^s disease
     Dosage: 4 DOSAGE FORM, Q2WEEKS
     Route: 042
     Dates: start: 201111
  2. AGALSIDASE ALFA [Suspect]
     Active Substance: AGALSIDASE ALFA
     Dosage: 4 DOSAGE FORM
     Route: 041
     Dates: start: 20210927
  3. AGALSIDASE ALFA [Suspect]
     Active Substance: AGALSIDASE ALFA
     Dosage: 4 DOSAGE FORM
     Route: 065
  4. AGALSIDASE ALFA [Suspect]
     Active Substance: AGALSIDASE ALFA
     Dosage: 4 DOSAGE FORM, Q2WEEKS
     Route: 042
  5. AGALSIDASE ALFA [Suspect]
     Active Substance: AGALSIDASE ALFA
     Dosage: 4 DOSAGE FORM
     Route: 065
  6. AGALSIDASE ALFA [Suspect]
     Active Substance: AGALSIDASE ALFA
     Dosage: UNK
     Route: 042
  7. FOLIC ACID\IRON POLYMALTOSE [Suspect]
     Active Substance: FOLIC ACID\IRON POLYMALTOSE
     Indication: Product used for unknown indication
     Dosage: UNK
     Route: 065
  8. ELAPRASE [Suspect]
     Active Substance: IDURSULFASE
     Indication: Mucopolysaccharidosis II
     Dosage: 4 DOSAGE FORM
     Route: 042
  9. IRON POLYMALTOSE [Suspect]
     Active Substance: IRON POLYMALTOSE
     Indication: Product used for unknown indication
     Dosage: UNK
     Route: 065
  10. ENALAPRIL [Concomitant]
     Active Substance: ENALAPRIL
     Dosage: UNK
     Route: 065
  11. IRON POLYMALTOSE [Concomitant]
     Active Substance: IRON POLYMALTOSE
     Dosage: UNK
     Route: 065

REACTIONS (10)
  - Death [Fatal]
  - Intestinal perforation [Unknown]
  - Gastrointestinal inflammation [Unknown]
  - Infection [Unknown]
  - Rhinitis [Unknown]
  - Underdose [Unknown]
  - Incorrect dosage administered [Unknown]
  - Product dose omission issue [Unknown]
  - Cough [Unknown]
  - Influenza [Recovered/Resolved]

NARRATIVE: CASE EVENT DATE: 20230226
